FAERS Safety Report 18540404 (Version 1)
Quarter: 2020Q4

REPORT INFORMATION
  Report Type: Spontaneous
  Country: US (occurrence: US)
  Receive Date: 20201124
  Receipt Date: 20201124
  Transmission Date: 20210114
  Serious: Yes (Life-Threatening, Hospitalization, Disabling)
  Sender: FDA-Public Use
  Company Number: US-ALLERGAN-2045450US

PATIENT
  Sex: Female

DRUGS (4)
  1. BOTOX [Suspect]
     Active Substance: ONABOTULINUMTOXINA
     Indication: SKIN WRINKLING
     Dosage: UNK, SINGLE
     Dates: start: 20190809, end: 20190809
  2. BOTOX [Suspect]
     Active Substance: ONABOTULINUMTOXINA
     Indication: SKIN WRINKLING
     Dosage: UNK, SINGLE
     Dates: start: 20190809, end: 20190809
  3. BOTOX [Suspect]
     Active Substance: ONABOTULINUMTOXINA
     Indication: SKIN WRINKLING
     Dosage: UNK, SINGLE
     Dates: start: 20190809, end: 20190809
  4. BOTOX [Suspect]
     Active Substance: ONABOTULINUMTOXINA
     Indication: SKIN WRINKLING
     Dosage: UNK, SINGLE
     Dates: start: 20190809, end: 20190809

REACTIONS (8)
  - Blindness [Unknown]
  - Off label use [Unknown]
  - Botulism [Unknown]
  - Loss of personal independence in daily activities [Unknown]
  - Injury [Unknown]
  - Myasthenia gravis [Unknown]
  - Eyelid ptosis [Unknown]
  - Strabismus [Unknown]

NARRATIVE: CASE EVENT DATE: 201911
